FAERS Safety Report 17801800 (Version 1)
Quarter: 2020Q2

REPORT INFORMATION
  Report Type: Spontaneous
  Country: US (occurrence: US)
  Receive Date: 20200519
  Receipt Date: 20200519
  Transmission Date: 20200714
  Serious: No
  Sender: FDA-Public Use
  Company Number: US-SA-2020SA127230

PATIENT
  Sex: Female

DRUGS (4)
  1. DECADRON [Concomitant]
     Active Substance: DEXAMETHASONE
     Route: 065
  2. SARCLISA [Suspect]
     Active Substance: ISATUXIMAB-IRFC
     Route: 065
  3. TYLENOL [Concomitant]
     Active Substance: ACETAMINOPHEN
     Route: 065
  4. BENADRYL [Concomitant]
     Active Substance: DIPHENHYDRAMINE HYDROCHLORIDE
     Route: 065

REACTIONS (4)
  - Chills [Unknown]
  - Dyspnoea [Unknown]
  - Chest discomfort [Unknown]
  - Infusion related reaction [Unknown]
